FAERS Safety Report 5336038-X (Version None)
Quarter: 2007Q1

REPORT INFORMATION
  Report Type: 
  Country: None (occurrence: None)
  Receive Date: 20070302
  Receipt Date: 20070130
  Transmission Date: 20070707
  Serious: No
  Sender: FDA-Public Use
  Company Number: 2007MP000052

PATIENT
  Age: 62 Year
  Sex: Male
  Weight: 75.7507 kg

DRUGS (3)
  1. DACOGEN [Suspect]
     Indication: MYELODYSPLASTIC SYNDROME
     Dosage: 20 MG; QD; IV
     Route: 042
     Dates: start: 20060101, end: 20060101
  2. DACOGEN [Suspect]
     Indication: MYELODYSPLASTIC SYNDROME
     Dosage: 20 MG; QD; IV
     Route: 042
     Dates: start: 20070127, end: 20070130
  3. ANZEMET [Concomitant]

REACTIONS (2)
  - INFUSION SITE EXTRAVASATION [None]
  - OFF LABEL USE [None]
